FAERS Safety Report 15075186 (Version 1)
Quarter: 2018Q3

REPORT INFORMATION
  Report Type: Report from Study
  Country: US (occurrence: US)
  Receive Date: 20180627
  Receipt Date: 20180627
  Transmission Date: 20181010
  Serious: No
  Sender: FDA-Public Use
  Company Number: US-SAOL THERAPEUTICS-2017SAO01590

PATIENT
  Age: 39 Year
  Sex: Female

DRUGS (6)
  1. COMPOUNDED BACLOFEN [Suspect]
     Active Substance: BACLOFEN
     Dosage: 186.55 ?G, \DAY
     Route: 037
  2. PF MORPHINE [Suspect]
     Active Substance: MORPHINE
     Dosage: 2.755 MG, \DAY
     Route: 037
  3. BACLOFEN. [Suspect]
     Active Substance: BACLOFEN
     Dosage: 137.79 ?G, \DAY
     Route: 037
  4. BACLOFEN. [Suspect]
     Active Substance: BACLOFEN
     Dosage: 186.55 ?G, \DAY MAX
     Route: 037
  5. PF MORPHINE [Suspect]
     Active Substance: MORPHINE
     Dosage: 3.731 MG, \DAY
     Route: 037
  6. PF MORPHINE [Suspect]
     Active Substance: MORPHINE
     Dosage: 3.731 MG, \DAY MAX
     Route: 037

REACTIONS (2)
  - Implant site pain [Recovered/Resolved]
  - Implant site extravasation [Recovered/Resolved]

NARRATIVE: CASE EVENT DATE: 20170921
